FAERS Safety Report 8369965-X (Version None)
Quarter: 2012Q2

REPORT INFORMATION
  Report Type: 
  Country: None (occurrence: None)
  Receive Date: 20120518
  Receipt Date: 20120511
  Transmission Date: 20120825
  Serious: No
  Sender: FDA-Public Use
  Company Number: US-PFIZER INC-2012115736

PATIENT
  Sex: Female

DRUGS (1)
  1. ZALEPLON [Suspect]
     Indication: INSOMNIA
     Dosage: 10 MG, 1X/DAY
     Dates: start: 20120501, end: 20120502

REACTIONS (5)
  - DRUG INEFFECTIVE [None]
  - INSOMNIA [None]
  - DIZZINESS [None]
  - ASTHENIA [None]
  - POOR QUALITY SLEEP [None]
